FAERS Safety Report 6026492-2 (Version None)
Quarter: 2009Q1

REPORT INFORMATION
  Report Type: 
  Country: None (occurrence: None)
  Receive Date: 20090102
  Receipt Date: 20081226
  Transmission Date: 20090719
  Serious: Yes (Other)
  Sender: FDA-Public Use
  Company Number: US-BIOGENIDEC-2008BI029055

PATIENT
  Age: 43 Year
  Sex: Female

DRUGS (1)
  1. AVONEX [Suspect]
     Indication: MULTIPLE SCLEROSIS
     Route: 030
     Dates: start: 20031114

REACTIONS (5)
  - CARTILAGE INJURY [None]
  - FALL [None]
  - MULTIPLE SCLEROSIS RELAPSE [None]
  - PERIARTHRITIS [None]
  - ROTATOR CUFF SYNDROME [None]
